FAERS Safety Report 6974658-7 (Version None)
Quarter: 2010Q3

REPORT INFORMATION
  Report Type: 
  Country: None (occurrence: None)
  Receive Date: 20100909
  Receipt Date: 20081206
  Transmission Date: 20110219
  Serious: No
  Sender: FDA-Public Use
  Company Number: US-WYE-H07093108

PATIENT
  Sex: Female

DRUGS (2)
  1. PRISTIQ [Suspect]
     Indication: MOOD SWINGS
     Dosage: UNKNOWN
     Dates: start: 20081001, end: 20080101
  2. PRISTIQ [Suspect]
     Dosage: ^JUST STARTED WEANING MYSELF OFF^
     Dates: start: 20080101, end: 20081203

REACTIONS (5)
  - DIZZINESS [None]
  - DRUG WITHDRAWAL SYNDROME [None]
  - INTENTIONAL DRUG MISUSE [None]
  - PARAESTHESIA [None]
  - TINNITUS [None]
